FAERS Safety Report 4495606-8 (Version None)
Quarter: 2004Q4

REPORT INFORMATION
  Report Type: 
  Country: None (occurrence: None)
  Receive Date: 20041108
  Receipt Date: 20041028
  Transmission Date: 20050328
  Serious: Yes (Hospitalization)
  Sender: FDA-Public Use
  Company Number: FR-BRISTOL-MYERS SQUIBB COMPANY-12749016

PATIENT
  Age: 82 Year
  Sex: Female

DRUGS (4)
  1. COUMADIN [Suspect]
     Indication: ARTERITIS
     Dosage: TABLET-DOSAGE UNKNOWN; TREATED FOR YEARS
     Route: 048
     Dates: end: 20040820
  2. CRESTOR [Interacting]
     Route: 048
     Dates: start: 20040701, end: 20040820
  3. CORDARONE [Interacting]
     Dosage: 200MG X 5/WEEK
     Route: 048
     Dates: start: 20040701, end: 20040820
  4. EFFEXOR [Concomitant]

REACTIONS (7)
  - DRUG INTERACTION [None]
  - FALL [None]
  - HAEMATOMA [None]
  - HIP FRACTURE [None]
  - INTERNATIONAL NORMALISED RATIO INCREASED [None]
  - PELVIC FRACTURE [None]
  - PROTHROMBIN TIME RATIO DECREASED [None]
